FAERS Safety Report 5440470-3 (Version None)
Quarter: 2007Q3

REPORT INFORMATION
  Report Type: 
  Country: None (occurrence: None)
  Receive Date: 20070831
  Receipt Date: 20070829
  Transmission Date: 20080115
  Serious: Yes (Death, Life-Threatening, Other)
  Sender: FDA-Public Use
  Company Number: US-ELI_LILLY_AND_COMPANY-US200708006536

PATIENT
  Age: 79 Year
  Sex: Female

DRUGS (1)
  1. XIGRIS [Suspect]
     Indication: SEPSIS
     Dates: start: 20070801

REACTIONS (5)
  - CARDIAC ARREST [None]
  - CYANOSIS [None]
  - DISORIENTATION [None]
  - DYSPNOEA [None]
  - PULMONARY EMBOLISM [None]
